FAERS Safety Report 9284374 (Version 1)
Quarter: 2013Q2

REPORT INFORMATION
  Report Type: Spontaneous
  Country: US (occurrence: US)
  Receive Date: 20130510
  Receipt Date: 20130510
  Transmission Date: 20140414
  Serious: No
  Sender: FDA-Public Use
  Company Number: US-ASTRAZENECA-2013SE26199

PATIENT
  Sex: Female

DRUGS (3)
  1. ZOMIG NASAL SPRAY [Suspect]
     Indication: MIGRAINE
     Dosage: 1 SPRAY IN 1 NOSTRIL QD PRN HEADACHE
     Route: 045
  2. TOPAMAX [Concomitant]
  3. RELPAX [Concomitant]

REACTIONS (2)
  - Migraine [Unknown]
  - Drug ineffective [Unknown]
